FAERS Safety Report 7374499 (Version 2)
Quarter: 2013Q1

REPORT INFORMATION
  Report Type: Spontaneous
  Country: US (occurrence: US)
  Receive Date: 20100503
  Receipt Date: 20130116
  Transmission Date: 20140127
  Serious: No
  Sender: FDA-Public Use
  Company Number: US-ASTRAZENECA-2009UW14726

PATIENT
  Age: 65 Year
  Sex: Female
  Weight: 55.3 kg

DRUGS (13)
  1. NEXIUM [Suspect]
     Indication: GASTROOESOPHAGEAL REFLUX DISEASE
     Route: 048
  2. NEXIUM [Suspect]
     Indication: GASTROOESOPHAGEAL REFLUX DISEASE
     Dosage: IN A MORNING AND EVENING (TWO IN ONE DAY)
     Route: 048
     Dates: start: 2012, end: 2012
  3. SYNTHROID [Suspect]
     Indication: HYPOTHYROIDISM
     Dates: start: 1989
  4. SYNTHROID [Suspect]
     Indication: HYPOTHYROIDISM
     Dates: start: 1989
  5. SYNTHROID [Suspect]
     Indication: HYPOTHYROIDISM
     Dates: start: 1989
  6. SYNTHROID [Suspect]
     Indication: HYPOTHYROIDISM
     Dosage: 88 UG FOUR IN 1 WEEK
     Dates: start: 2009
  7. SYNTHROID [Suspect]
     Indication: HYPOTHYROIDISM
     Dates: start: 2009
  8. DILTIAZEM HYDROCHLORIDE [Concomitant]
  9. TRIAMCINOLONE ACETONIDE [Concomitant]
  10. DIAZEPAM [Concomitant]
  11. CARDIAZEM [Concomitant]
     Indication: HYPERTENSION
  12. VAGIFEM [Concomitant]
  13. FLOVENT INHALER [Concomitant]
     Indication: ASTHMA

REACTIONS (6)
  - Anxiety [Recovered/Resolved]
  - Blood thyroid stimulating hormone decreased [Not Recovered/Not Resolved]
  - Blood thyroid stimulating hormone increased [Unknown]
  - Feeling abnormal [Recovering/Resolving]
  - Palpitations [Recovered/Resolved]
  - Malaise [Unknown]
